FAERS Safety Report 12338970 (Version 2)
Quarter: 2016Q2

REPORT INFORMATION
  Report Type: Spontaneous
  Country: US (occurrence: US)
  Receive Date: 20160505
  Receipt Date: 20160513
  Transmission Date: 20160815
  Serious: No
  Sender: FDA-Public Use
  Company Number: US-PFIZER INC-2016245947

PATIENT
  Age: 69 Year
  Sex: Male
  Weight: 131.54 kg

DRUGS (7)
  1. GEMFIBROZIL. [Concomitant]
     Active Substance: GEMFIBROZIL
     Indication: BLOOD TRIGLYCERIDES ABNORMAL
     Dosage: 600 MG, 2X/DAY
     Route: 048
     Dates: start: 1994
  2. FORADIL FUMARATE [Concomitant]
     Indication: ASTHMA
     Dosage: 12 UG, EVERY TWELVE HOURS, CAPSULE THAT IS INHALED
     Route: 055
  3. ALBUTEROL. [Concomitant]
     Active Substance: ALBUTEROL
     Indication: ASTHMA
     Dosage: 90MCGS/PUFF, 2 PUFFS, AS NEEDED, INHALED
     Route: 055
     Dates: start: 1972
  4. LATANOPROST. [Suspect]
     Active Substance: LATANOPROST
     Indication: GLAUCOMA
     Dosage: 100 UG, 1X/DAY (50MCG/ML, 1 DROP IN EACH EYE AT NIGHT)
     Dates: start: 201601, end: 20160503
  5. NAPROXEN. [Concomitant]
     Active Substance: NAPROXEN
     Indication: ARTHRITIS
  6. NAPROXEN. [Concomitant]
     Active Substance: NAPROXEN
     Indication: EXOSTOSIS
     Dosage: 500 MG, 2X/DAY
     Route: 048
  7. B50 [Concomitant]
     Indication: DYSPEPSIA
     Dosage: TAKEN OCCASIONALLY, UNKNOWN DOSE, TABLET

REACTIONS (18)
  - Productive cough [Unknown]
  - Dyspnoea [Unknown]
  - Tonsillar hypertrophy [Not Recovered/Not Resolved]
  - Fluid retention [Unknown]
  - Abdominal distension [Unknown]
  - Oropharyngeal pain [Unknown]
  - Influenza [Unknown]
  - Nasal discharge discolouration [Not Recovered/Not Resolved]
  - Eye discharge [Not Recovered/Not Resolved]
  - Nasopharyngitis [Unknown]
  - Vision blurred [Not Recovered/Not Resolved]
  - Upper respiratory tract infection [Not Recovered/Not Resolved]
  - Swelling [Unknown]
  - Pain [Not Recovered/Not Resolved]
  - Weight increased [Unknown]
  - Odynophagia [Not Recovered/Not Resolved]
  - Eyelid disorder [Not Recovered/Not Resolved]
  - Back pain [Not Recovered/Not Resolved]

NARRATIVE: CASE EVENT DATE: 201602
